FAERS Safety Report 7410048-0 (Version None)
Quarter: 2011Q2

REPORT INFORMATION
  Report Type: 
  Country: None (occurrence: None)
  Receive Date: 20110412
  Receipt Date: 20110330
  Transmission Date: 20111010
  Serious: Yes (Hospitalization)
  Sender: FDA-Public Use
  Company Number: FR-PFIZER INC-2005130562

PATIENT
  Age: 81 Year
  Sex: Male
  Weight: 60 kg

DRUGS (5)
  1. AMLODIPINE BESYLATE [Suspect]
     Indication: HYPERTENSION
     Dosage: 5 MG, 2X/DAY
     Route: 048
  2. TEMESTA [Suspect]
     Dosage: 1 MG, 1X/DAY
     Route: 048
  3. TANAKAN [Concomitant]
     Dosage: UNK
     Route: 065
     Dates: end: 20050731
  4. TADENAN [Suspect]
     Indication: ILL-DEFINED DISORDER
     Dosage: 50 MG, 2X/DAY
     Route: 048
  5. ALLOPURINOL [Suspect]
     Indication: GOUT
     Dosage: 200 MG, 1X/DAY
     Route: 048

REACTIONS (2)
  - HYPONATRAEMIA [None]
  - ANGIODERMATITIS [None]
